FAERS Safety Report 24780014 (Version 1)
Quarter: 2024Q4

REPORT INFORMATION
  Report Type: Spontaneous
  Country: US (occurrence: US)
  Receive Date: 20241227
  Receipt Date: 20241227
  Transmission Date: 20250114
  Serious: No
  Sender: SANOFI AVENTIS
  Company Number: US-SA-2024SA381720

PATIENT
  Age: 70 Year

DRUGS (1)
  1. MULTAQ [Suspect]
     Active Substance: DRONEDARONE
     Indication: Ventricular extrasystoles
     Dosage: 400MG, BID ( 2 TIMES EVERY DAY)
     Route: 048

REACTIONS (1)
  - Off label use [Unknown]
